FAERS Safety Report 5277615-4 (Version None)
Quarter: 2007Q1

REPORT INFORMATION
  Report Type: 
  Country: None (occurrence: None)
  Receive Date: 20070327
  Receipt Date: 20070315
  Transmission Date: 20070707
  Serious: Yes (Other)
  Sender: FDA-Public Use
  Company Number: US-SANOFI-SYNTHELABO-A03200702040

PATIENT
  Age: 56 Year
  Sex: Female

DRUGS (5)
  1. SYNTHROID [Concomitant]
     Dosage: UNK
     Route: 048
  2. NOVOLOG [Concomitant]
     Dosage: UNK
     Route: 058
  3. LANTUS [Concomitant]
     Dosage: UNK
     Route: 058
  4. AMBIEN [Suspect]
     Route: 048
  5. AMBIEN [Suspect]
     Route: 048
     Dates: end: 20070314

REACTIONS (18)
  - ABDOMINAL PAIN [None]
  - CHEST DISCOMFORT [None]
  - COLON CANCER [None]
  - DIABETES MELLITUS [None]
  - EATING DISORDER [None]
  - FATIGUE [None]
  - HEPATIC ENZYME INCREASED [None]
  - HYPOAESTHESIA [None]
  - ILL-DEFINED DISORDER [None]
  - INFLUENZA LIKE ILLNESS [None]
  - LOSS OF CONSCIOUSNESS [None]
  - MEMORY IMPAIRMENT [None]
  - PRURITUS [None]
  - RASH [None]
  - ROAD TRAFFIC ACCIDENT [None]
  - SLEEP WALKING [None]
  - SWELLING [None]
  - URTICARIA [None]
